FAERS Safety Report 5954631-8 (Version None)
Quarter: 2008Q4

REPORT INFORMATION
  Report Type: 
  Country: None (occurrence: None)
  Receive Date: 20081112
  Receipt Date: 20081031
  Transmission Date: 20090506
  Serious: Yes (Hospitalization)
  Sender: FDA-Public Use
  Company Number: GXKR2008AT10408

PATIENT
  Age: 77 Year
  Sex: Female

DRUGS (3)
  1. ACETYLSALICYLIC ACID SRT [Suspect]
     Indication: VARICOSE VEIN
     Dosage: 50 MG/DAY
  2. SIMVASTATIN [Concomitant]
  3. FLUNITRAZEPAM (FLUNITRAZEPAM) [Concomitant]

REACTIONS (11)
  - ANAEMIA [None]
  - EXTRADURAL HAEMATOMA [None]
  - FAECAL INCONTINENCE [None]
  - GASTROINTESTINAL MOTILITY DISORDER [None]
  - INTERVERTEBRAL DISC PROTRUSION [None]
  - MEAN PLATELET VOLUME INCREASED [None]
  - OPERATIVE HAEMORRHAGE [None]
  - OSTEOCHONDROSIS [None]
  - PARAPLEGIA [None]
  - SPINAL EPIDURAL HAEMORRHAGE [None]
  - URINARY HESITATION [None]
